FAERS Safety Report 8084532-3 (Version None)
Quarter: 2012Q1

REPORT INFORMATION
  Report Type: 
  Country: None (occurrence: None)
  Receive Date: 20120128
  Receipt Date: 20110331
  Transmission Date: 20120608
  Serious: No
  Sender: FDA-Public Use
  Company Number: US-ABBOTT-11P-163-0716612-00

PATIENT
  Sex: Female
  Weight: 61.29 kg

DRUGS (4)
  1. HUMIRA [Suspect]
     Indication: RHEUMATOID ARTHRITIS
     Dates: start: 20110201
  2. ATIVAN [Concomitant]
     Indication: ANXIETY
  3. PHENOBARBITAL TAB [Concomitant]
     Indication: PAIN
  4. TYLENOL W/ CODEINE [Concomitant]
     Indication: PAIN

REACTIONS (2)
  - VISUAL IMPAIRMENT [None]
  - WEIGHT DECREASED [None]
